FAERS Safety Report 6786256-9 (Version None)
Quarter: 2010Q2

REPORT INFORMATION
  Report Type: 
  Country: None (occurrence: None)
  Receive Date: 20100623
  Receipt Date: 20100615
  Transmission Date: 20101027
  Serious: Yes (Death)
  Sender: FDA-Public Use
  Company Number: JP-JNJCH-2010014338

PATIENT
  Sex: Male

DRUGS (1)
  1. RIUP %5 [Suspect]
     Indication: ANDROGENETIC ALOPECIA
     Dosage: TEXT:1ML X 2
     Route: 061

REACTIONS (1)
  - DEATH [None]
